FAERS Safety Report 5787786-9 (Version None)
Quarter: 2008Q2

REPORT INFORMATION
  Report Type: 
  Country: None (occurrence: None)
  Receive Date: 20080625
  Receipt Date: 20080612
  Transmission Date: 20081010
  Serious: Yes (Other)
  Sender: FDA-Public Use
  Company Number: PHEH2008US05377

PATIENT
  Sex: Male

DRUGS (1)
  1. VOLTAREN-XR [Suspect]
     Indication: SPINAL COLUMN STENOSIS
     Dosage: 100 MG, PRN

REACTIONS (1)
  - FIBULA FRACTURE [None]
